FAERS Safety Report 13093359 (Version 1)
Quarter: 2017Q1

REPORT INFORMATION
  Report Type: Report from Study
  Country: FR (occurrence: FR)
  Receive Date: 20170106
  Receipt Date: 20170106
  Transmission Date: 20170428
  Serious: Yes (Death, Other)
  Sender: FDA-Public Use
  Company Number: FR-GLAXOSMITHKLINE-FR2016GSK195509

PATIENT
  Sex: Male
  Weight: 4 kg

DRUGS (11)
  1. PHENOBARBITAL. [Suspect]
     Active Substance: PHENOBARBITAL
     Indication: SEIZURE
     Route: 042
  2. CLOBAZAM [Suspect]
     Active Substance: CLOBAZAM
     Indication: SEIZURE
  3. CLONAZEPAM. [Suspect]
     Active Substance: CLONAZEPAM
     Indication: SEIZURE
  4. PHENYTOIN. [Suspect]
     Active Substance: PHENYTOIN
     Indication: SEIZURE
     Route: 042
  5. LAMOTRIGINE. [Suspect]
     Active Substance: LAMOTRIGINE
     Indication: SEIZURE
  6. MIDAZOLAM [Suspect]
     Active Substance: MIDAZOLAM HYDROCHLORIDE
     Indication: SEIZURE
  7. LORAZEPAM. [Suspect]
     Active Substance: LORAZEPAM
     Indication: SEIZURE
  8. VALPROIC ACID. [Suspect]
     Active Substance: VALPROIC ACID
     Indication: SEIZURE
  9. XYLOCAINE [Suspect]
     Active Substance: LIDOCAINE HYDROCHLORIDE
     Indication: SEIZURE
  10. NESDONAL [Suspect]
     Active Substance: THIOPENTAL SODIUM
     Indication: SEIZURE
  11. VIGABATRIN [Suspect]
     Active Substance: VIGABATRIN
     Indication: SEIZURE

REACTIONS (14)
  - Seizure [Unknown]
  - Delayed myelination [Unknown]
  - Hypotonia [Unknown]
  - Drug resistance [Unknown]
  - Transverse sinus thrombosis [Unknown]
  - Brain oedema [Unknown]
  - Tonic convulsion [Unknown]
  - Eye movement disorder [Unknown]
  - Dyskinesia [Unknown]
  - Partial seizures [Unknown]
  - Death [Fatal]
  - Vasogenic cerebral oedema [Unknown]
  - Musculoskeletal stiffness [Unknown]
  - Congenital central nervous system anomaly [Unknown]
